FAERS Safety Report 13967373 (Version 2)
Quarter: 2018Q1

REPORT INFORMATION
  Report Type: Spontaneous
  Country: US (occurrence: US)
  Receive Date: 20170914
  Receipt Date: 20180118
  Transmission Date: 20180508
  Serious: No
  Sender: FDA-Public Use
  Company Number: US-PFIZER INC-2017394488

PATIENT
  Age: 59 Year
  Sex: Female
  Weight: 68 kg

DRUGS (4)
  1. NAPROXEN ACCORD [Concomitant]
     Indication: BACK INJURY
     Dosage: 500 MG, AS NEEDED (1 TABLET BY MOUTH EVERY 12 HRS )
     Route: 048
     Dates: start: 201707
  2. CYCLOBENZAPRINE. [Concomitant]
     Active Substance: CYCLOBENZAPRINE
     Indication: BACK INJURY
     Dosage: 10 MG, UNK (1 TABLET BY MOUTH AT BED TIME )
     Route: 048
     Dates: start: 201708
  3. XELJANZ [Suspect]
     Active Substance: TOFACITINIB CITRATE
     Indication: RHEUMATOID ARTHRITIS
     Dosage: 2 DF, DAILY
     Route: 048
  4. XELJANZ [Suspect]
     Active Substance: TOFACITINIB CITRATE
     Dosage: 5 MG, 2 TIMES A DAY
     Dates: start: 2015

REACTIONS (2)
  - Myalgia [Recovered/Resolved]
  - Muscle strain [Recovered/Resolved]

NARRATIVE: CASE EVENT DATE: 201707
